FAERS Safety Report 8784075 (Version 1)
Quarter: 2012Q4

REPORT INFORMATION
  Report Type: 
  Country: CN (occurrence: CN)
  Receive Date: 20120913
  Receipt Date: 20120913
  Transmission Date: 20130627
  Serious: Yes (Hospitalization, Other)
  Sender: FDA-Public Use
  Company Number: CN-ABBOTT-12P-035-0978849-00

PATIENT
  Age: 20 Year
  Sex: Female

DRUGS (2)
  1. DEPAKINE [Suspect]
     Indication: EPILEPSY
     Route: 048
     Dates: start: 20100329, end: 20100414
  2. LAMOTRIGINE [Concomitant]
     Indication: PRODUCT USED FOR UNKNOWN INDICATION

REACTIONS (8)
  - Feeling cold [Unknown]
  - Rash erythematous [Unknown]
  - Drug hypersensitivity [Recovering/Resolving]
  - Pyrexia [Unknown]
  - Pruritus [Unknown]
  - Liver function test abnormal [Unknown]
  - Alanine aminotransferase increased [Unknown]
  - Aspartate aminotransferase increased [Unknown]
